FAERS Safety Report 20451177 (Version 1)
Quarter: 2022Q1

REPORT INFORMATION
  Report Type: Spontaneous
  Country: FR (occurrence: FR)
  Receive Date: 20220209
  Receipt Date: 20220209
  Transmission Date: 20220423
  Serious: Yes (Death)
  Sender: FDA-Public Use
  Company Number: None

PATIENT
  Age: 63 Year
  Sex: Female
  Weight: 60 kg

DRUGS (6)
  1. FLUOXETINE [Suspect]
     Active Substance: FLUOXETINE HYDROCHLORIDE
     Indication: Depression
     Dosage: UNK UNK, UNKNOWN
     Route: 065
  2. MIDODRINE HYDROCHLORIDE [Suspect]
     Active Substance: MIDODRINE HYDROCHLORIDE
     Indication: Orthostatic hypotension
     Dosage: UNK UNK, UNKNOWN
     Route: 065
  3. TRAMADOL HYDROCHLORIDE [Suspect]
     Active Substance: TRAMADOL HYDROCHLORIDE
     Indication: Pain in extremity
     Dosage: UNK UNK, UNKNOWN
     Route: 065
     Dates: start: 202111
  4. COMIRNATY [Suspect]
     Active Substance: TOZINAMERAN
     Indication: COVID-19 immunisation
     Dosage: 1 DOSAGE FORM, DAILY
     Route: 030
     Dates: start: 20211209, end: 20211209
  5. STALEVO [Suspect]
     Active Substance: CARBIDOPA\ENTACAPONE\LEVODOPA
     Indication: Extrapyramidal disorder
     Dosage: UNK UNK, UNKNOWN
     Route: 065
  6. LACTULOSE [Concomitant]
     Active Substance: LACTULOSE
     Indication: Constipation

REACTIONS (1)
  - Death [Fatal]

NARRATIVE: CASE EVENT DATE: 20211210
